FAERS Safety Report 10400211 (Version 1)
Quarter: 2014Q1

REPORT INFORMATION
  Report Type: Spontaneous
  Country: US (occurrence: None)
  Receive Date: 20130815
  Receipt Date: 20130815
  Transmission Date: 20141002
  Serious: Yes (Other)
  Sender: FDA-Public Use
  Company Number: ADR-2012-01281

PATIENT
  Sex: Female

DRUGS (4)
  1. BACLOFEN [Suspect]
     Indication: PAIN
  2. MORPHINE [Concomitant]
  3. CLONIDINE [Concomitant]
  4. KETAMINE [Concomitant]

REACTIONS (5)
  - Presyncope [None]
  - Headache [None]
  - Nervousness [None]
  - Anxiety [None]
  - Unevaluable event [None]
